FAERS Safety Report 5055522-X (Version None)
Quarter: 2006Q3

REPORT INFORMATION
  Report Type: 
  Country: None (occurrence: None)
  Receive Date: 20060717
  Receipt Date: 20060717
  Transmission Date: 20061208
  Serious: Yes (Life-Threatening, Hospitalization)
  Sender: FDA-Public Use
  Company Number: None

PATIENT
  Age: 61 Year
  Sex: Male
  Weight: 91.173 kg

DRUGS (12)
  1. MORPHINE [Suspect]
     Indication: PROCEDURAL PAIN
     Dosage: 1 ML IV PRN (PCA)
     Dates: start: 20060126
  2. NORVASC [Concomitant]
  3. ZYRTEC [Concomitant]
  4. OXAPROZIN [Concomitant]
  5. ZOCOR [Concomitant]
  6. ASPIRIN [Concomitant]
  7. TRIZIVIR [Concomitant]
  8. TRAZODONE HCL [Concomitant]
  9. FLONASE [Concomitant]
  10. ACETAMINOPHEN [Concomitant]
  11. TRICHLOR [Concomitant]
  12. LEXAPRO [Concomitant]

REACTIONS (2)
  - POST PROCEDURAL COMPLICATION [None]
  - RESPIRATORY ARREST [None]
